FAERS Safety Report 8228137-X (Version None)
Quarter: 2012Q1

REPORT INFORMATION
  Report Type: 
  Country: None (occurrence: None)
  Receive Date: 20120322
  Receipt Date: 20111216
  Transmission Date: 20120608
  Serious: No
  Sender: FDA-Public Use
  Company Number: US-BRISTOL-MYERS SQUIBB COMPANY-16298796

PATIENT
  Age: 84 Year
  Sex: Male
  Weight: 66 kg

DRUGS (2)
  1. VITAMIN TAB [Concomitant]
  2. ERBITUX [Suspect]
     Indication: COLON CANCER METASTATIC
     Dates: start: 20111001

REACTIONS (2)
  - RASH PRURITIC [None]
  - WEIGHT DECREASED [None]
